FAERS Safety Report 5291025-5 (Version None)
Quarter: 2007Q2

REPORT INFORMATION
  Report Type: 
  Country: None (occurrence: None)
  Receive Date: 20070405
  Receipt Date: 20070405
  Transmission Date: 20071010
  Serious: No
  Sender: FDA-Public Use
  Company Number: None

PATIENT
  Age: 47 Year
  Sex: Male

DRUGS (1)
  1. EFFEXOR XR [Suspect]
     Dosage: 1 CAPSULE DAILY PO
     Route: 048

REACTIONS (4)
  - ABDOMINAL PAIN UPPER [None]
  - DISORIENTATION [None]
  - INSOMNIA [None]
  - LETHARGY [None]
